FAERS Safety Report 5662512-2 (Version None)
Quarter: 2008Q1

REPORT INFORMATION
  Report Type: 
  Country: None (occurrence: None)
  Receive Date: 20080313
  Receipt Date: 20080304
  Transmission Date: 20080703
  Serious: Yes (Other)
  Sender: FDA-Public Use
  Company Number: TW-JNJFOC-20080300463

PATIENT

DRUGS (3)
  1. TOPAMAX [Suspect]
     Indication: EPILEPSY
     Route: 048
  2. NEURONTIN [Concomitant]
     Indication: EPILEPSY
     Route: 048
  3. KEPPRA [Concomitant]
     Indication: EPILEPSY
     Route: 048

REACTIONS (1)
  - HYPERAMMONAEMIA [None]
